FAERS Safety Report 4582865-6 (Version None)
Quarter: 2005Q1

REPORT INFORMATION
  Report Type: 
  Country: None (occurrence: None)
  Receive Date: 20050215
  Receipt Date: 20041222
  Transmission Date: 20050727
  Serious: Yes (Hospitalization)
  Sender: FDA-Public Use
  Company Number: PHBS2004JP17260

PATIENT
  Age: 6 Year
  Sex: Male
  Weight: 19 kg

DRUGS (11)
  1. CYLOCIDE [Suspect]
     Indication: ACUTE LYMPHOCYTIC LEUKAEMIA
     Dosage: 4000 MG/M2/DAY
     Route: 042
     Dates: start: 20040520, end: 20040522
  2. L-PAM [Suspect]
     Indication: ACUTE LYMPHOCYTIC LEUKAEMIA
     Dosage: 90 MG/M2/DAY
     Route: 042
     Dates: start: 20040523, end: 20040524
  3. METHOTREXATE [Suspect]
     Indication: PROPHYLAXIS AGAINST TRANSPLANT REJECTION
     Dosage: 15 MG/M2
     Route: 042
     Dates: start: 20040527, end: 20040527
  4. METHOTREXATE [Suspect]
     Dosage: 10 MG/M2/D
     Route: 042
     Dates: start: 20040529, end: 20040529
  5. METHOTREXATE [Suspect]
     Dosage: 10 MG/M2/D
     Dates: start: 20040601, end: 20040601
  6. METHOTREXATE [Suspect]
     Dosage: 10 MG/M2/D
     Dates: start: 20040606, end: 20040606
  7. METHOTREXATE [Suspect]
     Dosage: 10 MG/M2/D
     Dates: start: 20040613, end: 20040613
  8. METHOTREXATE [Suspect]
     Dosage: 10 MG/M2/D
     Dates: start: 20040620, end: 20040620
  9. METHOTREXATE [Suspect]
     Dosage: 10 MG/M2/D
     Dates: start: 20040627, end: 20040627
  10. METHOTREXATE [Suspect]
     Dosage: 10 MG/M2/D
     Dates: start: 20040701, end: 20040701
  11. GLEEVEC [Suspect]
     Indication: ACUTE LYMPHOCYTIC LEUKAEMIA
     Dosage: 300 MG/DAY
     Route: 048
     Dates: start: 20040422, end: 20040511

REACTIONS (4)
  - DYSPNOEA [None]
  - GRAFT VERSUS HOST DISEASE [None]
  - INTERSTITIAL LUNG DISEASE [None]
  - TACHYPNOEA [None]
